FAERS Safety Report 5080137-7 (Version None)
Quarter: 2006Q3

REPORT INFORMATION
  Report Type: 
  Country: None (occurrence: None)
  Receive Date: 20060810
  Receipt Date: 20060731
  Transmission Date: 20061208
  Serious: Yes (Hospitalization)
  Sender: FDA-Public Use
  Company Number: S06-USA-03018-01

PATIENT
  Sex: Female

DRUGS (1)
  1. LEXAPRO [Suspect]
     Dates: start: 20030101

REACTIONS (1)
  - OPERATIVE HAEMORRHAGE [None]
